FAERS Safety Report 4382152-5 (Version None)
Quarter: 2004Q2

REPORT INFORMATION
  Report Type: 
  Country: None (occurrence: None)
  Receive Date: 20040615
  Receipt Date: 20030710
  Transmission Date: 20050107
  Serious: Yes (Hospitalization)
  Sender: FDA-Public Use
  Company Number: JP-SHR-03-010211

PATIENT
  Age: 50 Year
  Sex: Male
  Weight: 91 kg

DRUGS (11)
  1. QUADRAMET [Suspect]
     Indication: METASTATIC PAIN
     Dosage: 3360 MBQ, 1 DOSE, INTRAVENOUS
     Route: 042
     Dates: start: 20030513, end: 20030513
  2. MS CONTIN [Concomitant]
  3. SELOKEN-SLOW RELEASE [Concomitant]
  4. ACECOL (TEMOCAPRIL HYDROCHLORIDE) [Concomitant]
  5. PRAVASTATIN SODIUM [Concomitant]
  6. BUFFERIN [Concomitant]
  7. FAMOTIDINE [Concomitant]
  8. URSO [Concomitant]
  9. GLYBURIDE [Concomitant]
  10. DECADRON [Concomitant]
  11. LEUPLIN (LEUPRORELIN ACETATE) [Concomitant]

REACTIONS (6)
  - ANOREXIA [None]
  - DECREASED APPETITE [None]
  - DRUG EFFECT DECREASED [None]
  - EATING DISORDER [None]
  - PAIN EXACERBATED [None]
  - VOMITING [None]
